FAERS Safety Report 8853251 (Version 1)
Quarter: 2012Q4

REPORT INFORMATION
  Report Type: 
  Country: JP (occurrence: JP)
  Receive Date: 20121022
  Receipt Date: 20121022
  Transmission Date: 20130627
  Serious: Yes (Other)
  Sender: FDA-Public Use
  Company Number: JP-PFIZER INC-2012262878

PATIENT
  Age: 71 Year
  Sex: Male

DRUGS (3)
  1. LYRICA [Suspect]
     Indication: TREMOR
     Dosage: UNK
     Route: 048
  2. METHYCOBAL [Concomitant]
     Dosage: UNK
  3. BOTOX [Concomitant]
     Dosage: UNK

REACTIONS (2)
  - Retinal degeneration [Not Recovered/Not Resolved]
  - Glaucoma [Not Recovered/Not Resolved]
